FAERS Safety Report 9632367 (Version 1)
Quarter: 2013Q4

REPORT INFORMATION
  Report Type: Spontaneous
  Country: US (occurrence: None)
  Receive Date: 20131018
  Receipt Date: 20131018
  Transmission Date: 20140711
  Serious: No
  Sender: FDA-Public Use
  Company Number: None

PATIENT
  Age: 36 Year
  Sex: Female
  Weight: 96.1 kg

DRUGS (1)
  1. ISOVUE 370 [Suspect]
     Indication: ABDOMEN SCAN
     Route: 042
     Dates: start: 20131015, end: 20131015

REACTIONS (6)
  - Sneezing [None]
  - Swelling face [None]
  - Toothache [None]
  - Hypoaesthesia oral [None]
  - Facial pain [None]
  - Oedema mouth [None]
